FAERS Safety Report 6630673-4 (Version None)
Quarter: 2010Q1

REPORT INFORMATION
  Report Type: 
  Country: None (occurrence: None)
  Receive Date: 20100311
  Receipt Date: 20090528
  Transmission Date: 20100710
  Serious: No
  Sender: FDA-Public Use
  Company Number: US-BIOGENIDEC-2009BI016231

PATIENT
  Sex: Female

DRUGS (1)
  1. AVONEX [Suspect]
     Indication: MULTIPLE SCLEROSIS
     Route: 030

REACTIONS (11)
  - AMBLYOPIA [None]
  - APHASIA [None]
  - EYE IRRITATION [None]
  - FIBROMYALGIA [None]
  - HYPOAESTHESIA [None]
  - MULTIPLE SCLEROSIS [None]
  - MUSCULOSKELETAL STIFFNESS [None]
  - OPTIC NEURITIS [None]
  - PERONEAL NERVE PALSY [None]
  - TREMOR [None]
  - VISUAL IMPAIRMENT [None]
